FAERS Safety Report 6317748-4 (Version None)
Quarter: 2009Q3

REPORT INFORMATION
  Report Type: 
  Country: None (occurrence: None)
  Receive Date: 20090820
  Receipt Date: 20090820
  Transmission Date: 20100115
  Serious: Yes (Other)
  Sender: FDA-Public Use
  Company Number: None

PATIENT
  Sex: Female
  Weight: 105 kg

DRUGS (1)
  1. PRISTIQ [Suspect]
     Indication: ANXIETY
     Dosage: 50MG 1 DAILY PO
     Route: 048

REACTIONS (12)
  - DECREASED ACTIVITY [None]
  - DECREASED APPETITE [None]
  - DYSURIA [None]
  - HALLUCINATION [None]
  - HOMICIDAL IDEATION [None]
  - INSOMNIA [None]
  - MYDRIASIS [None]
  - PHOTOPSIA [None]
  - RETINAL DISORDER [None]
  - SUICIDAL IDEATION [None]
  - VISION BLURRED [None]
  - VOMITING [None]
